FAERS Safety Report 9322791 (Version 2)
Quarter: 2013Q4

REPORT INFORMATION
  Report Type: Spontaneous
  Country: US (occurrence: US)
  Receive Date: 20130601
  Receipt Date: 20131011
  Transmission Date: 20140711
  Serious: No
  Sender: FDA-Public Use
  Company Number: US-B.I. PHARMACEUTICALS,INC./RIDGEFIELD-2013-BI-15189BP

PATIENT
  Age: 73 Year
  Sex: Female
  Weight: 46 kg

DRUGS (9)
  1. COMBIVENT [Suspect]
     Indication: CHRONIC OBSTRUCTIVE PULMONARY DISEASE
     Dosage: STRENGTH: 18 MCG / 103 MCG; DAILY DOSE: 144MCG/824MCG
     Route: 055
     Dates: start: 1998, end: 20130624
  2. COMBIVENT [Suspect]
     Indication: CHRONIC OBSTRUCTIVE PULMONARY DISEASE
     Dosage: STRENGTH: 20 MCG / 100 MCG; DAILY DOSE: 80MCG/400MCG
     Route: 055
     Dates: start: 20130625
  3. NIFEDIPINE [Concomitant]
     Indication: BLOOD PRESSURE
     Dosage: 30 MG
     Route: 048
  4. QVAR [Concomitant]
     Indication: CHRONIC OBSTRUCTIVE PULMONARY DISEASE
     Dosage: 2 PUF
     Route: 055
  5. ALBUTEROL [Concomitant]
     Indication: CHRONIC OBSTRUCTIVE PULMONARY DISEASE
     Dosage: STRENGTH: 1 VIAL; DAILY DOSE: 4 VIALS
     Route: 055
  6. ALBUTEROL NEBLIZER [Concomitant]
     Indication: CHRONIC OBSTRUCTIVE PULMONARY DISEASE
     Dosage: STRENTH: 1 VIAL; DOSE: 4 VIALS
     Route: 055
     Dates: start: 1997
  7. ALBUTEROL NEBLIZER [Concomitant]
     Indication: ASTHMA
  8. IPRATROPIUM NEBULIZER [Concomitant]
     Indication: CHRONIC OBSTRUCTIVE PULMONARY DISEASE
     Dosage: STRENTH: 1 VIAL; DOSE: 4 VIALS
     Route: 055
     Dates: start: 1997
  9. IPRATROPIUM NEBULIZER [Concomitant]
     Indication: ASTHMA

REACTIONS (5)
  - Cough [Not Recovered/Not Resolved]
  - Drug effect decreased [Not Recovered/Not Resolved]
  - Drug effect delayed [Not Recovered/Not Resolved]
  - Productive cough [Not Recovered/Not Resolved]
  - Dyspnoea [Not Recovered/Not Resolved]
